FAERS Safety Report 21855906 (Version 1)
Quarter: 2023Q1

REPORT INFORMATION
  Report Type: Spontaneous
  Country: GR (occurrence: GR)
  Receive Date: 20230112
  Receipt Date: 20230112
  Transmission Date: 20230418
  Serious: Yes (Death, Other)
  Sender: FDA-Public Use
  Company Number: GR-002147023-NVSC2022GR276091

PATIENT
  Age: 70 Year
  Sex: Female

DRUGS (2)
  1. LETROZOLE [Suspect]
     Active Substance: LETROZOLE
     Indication: Breast cancer
     Dosage: UNK
     Route: 065
     Dates: start: 202103, end: 202109
  2. ALPELISIB [Suspect]
     Active Substance: ALPELISIB
     Indication: Breast cancer
     Dosage: UNK
     Route: 065
     Dates: start: 202103, end: 202109

REACTIONS (5)
  - Metastases to liver [Fatal]
  - Metastases to lung [Fatal]
  - Carcinoembryonic antigen increased [Unknown]
  - Carbohydrate antigen 15-3 increased [Unknown]
  - Rash [Unknown]

NARRATIVE: CASE EVENT DATE: 20210901
